FAERS Safety Report 6631740-1 (Version None)
Quarter: 2010Q1

REPORT INFORMATION
  Report Type: 
  Country: None (occurrence: None)
  Receive Date: 20100312
  Receipt Date: 20100303
  Transmission Date: 20100710
  Serious: Yes (Hospitalization)
  Sender: FDA-Public Use
  Company Number: FR-NOVOPROD-303955

PATIENT
  Age: 78 Year
  Sex: Female

DRUGS (7)
  1. NOVONORM [Suspect]
     Indication: TYPE 2 DIABETES MELLITUS
     Dosage: 4 MG, QD
     Route: 048
     Dates: end: 20091128
  2. SOTALEX [Concomitant]
     Dosage: 160 MG, QD
     Route: 048
  3. ALDACTONE [Concomitant]
     Dosage: 75 MG, QD
     Route: 048
  4. HYDERGINE                          /00436902/ [Concomitant]
  5. VASTAREL [Concomitant]
     Dosage: 35 MG, QD
     Route: 048
  6. PLAVIX [Concomitant]
     Dosage: UK
     Route: 048
  7. SPECIAFOLDINE [Concomitant]
     Dosage: UK
     Route: 048

REACTIONS (5)
  - ASTHENIA [None]
  - DIARRHOEA [None]
  - HYPOGLYCAEMIA [None]
  - RENAL FAILURE [None]
  - VERTIGO [None]
